FAERS Safety Report 15330354 (Version 1)
Quarter: 2018Q3

REPORT INFORMATION
  Report Type: Spontaneous
  Country: US (occurrence: US)
  Receive Date: 20180824
  Receipt Date: 20180824
  Transmission Date: 20181010
  Serious: Yes (Hospitalization)
  Sender: FDA-Public Use
  Company Number: None

PATIENT
  Age: 79 Year
  Sex: Male
  Weight: 90.72 kg

DRUGS (12)
  1. TRIAM/HCTZ [Concomitant]
     Active Substance: HYDROCHLOROTHIAZIDE\TRIAMTERENE
  2. CALCIUM [Concomitant]
     Active Substance: CALCIUM
  3. SYNTHROID [Concomitant]
     Active Substance: LEVOTHYROXINE SODIUM
  4. AMLODIPINE [Concomitant]
     Active Substance: AMLODIPINE BESYLATE
  5. LEVOTHYROXINE. [Concomitant]
     Active Substance: LEVOTHYROXINE
  6. NAPROXEN. [Concomitant]
     Active Substance: NAPROXEN
  7. LISINOPRIL. [Concomitant]
     Active Substance: LISINOPRIL
  8. MEN^S MULTIVITAMIN [Concomitant]
  9. EYLEA [Suspect]
     Active Substance: AFLIBERCEPT
     Indication: MACULAR DEGENERATION
     Dosage: ?          QUANTITY:1;OTHER ROUTE:INTRAVITREAL INJECTION?
     Dates: start: 20140614
  10. LOW DOSE ASPIRIN [Concomitant]
     Active Substance: ASPIRIN
  11. LUPRON [Concomitant]
     Active Substance: LEUPROLIDE ACETATE
  12. OCUVITE [Concomitant]
     Active Substance: VITAMINS

REACTIONS (1)
  - Blindness [None]

NARRATIVE: CASE EVENT DATE: 20171222
